FAERS Safety Report 26158010 (Version 1)
Quarter: 2025Q4

REPORT INFORMATION
  Report Type: Spontaneous
  Country: US (occurrence: US)
  Receive Date: 20251215
  Receipt Date: 20251215
  Transmission Date: 20260117
  Serious: Yes (Other)
  Sender: MYLAN
  Company Number: US-MYLANLABS-2025M1105827

PATIENT
  Age: 33 Year
  Sex: Male

DRUGS (48)
  1. DOXORUBICIN [Suspect]
     Active Substance: DOXORUBICIN
     Indication: B-cell lymphoma stage IV
     Dosage: UNK, CYCLE (ONE CYCLE OF R-CHOP CHEMOTHERAPY)
  2. DOXORUBICIN [Suspect]
     Active Substance: DOXORUBICIN
     Indication: Bone disorder
     Dosage: UNK, CYCLE (ONE CYCLE OF R-CHOP CHEMOTHERAPY)
  3. DOXORUBICIN [Suspect]
     Active Substance: DOXORUBICIN
     Indication: Bone marrow disorder
     Dosage: UNK, CYCLE (ONE CYCLE OF R-CHOP CHEMOTHERAPY)
     Route: 065
  4. DOXORUBICIN [Suspect]
     Active Substance: DOXORUBICIN
     Indication: High-grade B-cell lymphoma
     Dosage: UNK, CYCLE (ONE CYCLE OF R-CHOP CHEMOTHERAPY)
     Route: 065
  5. DOXORUBICIN [Suspect]
     Active Substance: DOXORUBICIN
     Dosage: UNK, CYCLE (FIVE CYCLES OF EPOCH-R CHEMOTHERAPY)
  6. DOXORUBICIN [Suspect]
     Active Substance: DOXORUBICIN
     Dosage: UNK, CYCLE (FIVE CYCLES OF EPOCH-R CHEMOTHERAPY)
  7. DOXORUBICIN [Suspect]
     Active Substance: DOXORUBICIN
     Dosage: UNK, CYCLE (FIVE CYCLES OF EPOCH-R CHEMOTHERAPY)
     Route: 065
  8. DOXORUBICIN [Suspect]
     Active Substance: DOXORUBICIN
     Dosage: UNK, CYCLE (FIVE CYCLES OF EPOCH-R CHEMOTHERAPY)
     Route: 065
  9. PREDNISONE [Suspect]
     Active Substance: PREDNISONE
     Indication: B-cell lymphoma stage IV
     Dosage: UNK, CYCLE (ONE CYCLE OF R-CHOP CHEMOTHERAPY)
  10. PREDNISONE [Suspect]
     Active Substance: PREDNISONE
     Indication: Bone disorder
     Dosage: UNK, CYCLE (ONE CYCLE OF R-CHOP CHEMOTHERAPY)
  11. PREDNISONE [Suspect]
     Active Substance: PREDNISONE
     Indication: Bone marrow disorder
     Dosage: UNK, CYCLE (ONE CYCLE OF R-CHOP CHEMOTHERAPY)
     Route: 065
  12. PREDNISONE [Suspect]
     Active Substance: PREDNISONE
     Indication: High-grade B-cell lymphoma
     Dosage: UNK, CYCLE (ONE CYCLE OF R-CHOP CHEMOTHERAPY)
     Route: 065
  13. PREDNISONE [Suspect]
     Active Substance: PREDNISONE
     Dosage: UNK, CYCLE (FIVE CYCLES OF EPOCH-R CHEMOTHERAPY)
  14. PREDNISONE [Suspect]
     Active Substance: PREDNISONE
     Dosage: UNK, CYCLE (FIVE CYCLES OF EPOCH-R CHEMOTHERAPY)
  15. PREDNISONE [Suspect]
     Active Substance: PREDNISONE
     Dosage: UNK, CYCLE (FIVE CYCLES OF EPOCH-R CHEMOTHERAPY)
     Route: 065
  16. PREDNISONE [Suspect]
     Active Substance: PREDNISONE
     Dosage: UNK, CYCLE (FIVE CYCLES OF EPOCH-R CHEMOTHERAPY)
     Route: 065
  17. ETOPOSIDE [Suspect]
     Active Substance: ETOPOSIDE
     Indication: B-cell lymphoma stage IV
     Dosage: UNK, CYCLE (ONE CYCLE OF R-CHOP CHEMOTHERAPY)
  18. ETOPOSIDE [Suspect]
     Active Substance: ETOPOSIDE
     Indication: Bone disorder
     Dosage: UNK, CYCLE (ONE CYCLE OF R-CHOP CHEMOTHERAPY)
  19. ETOPOSIDE [Suspect]
     Active Substance: ETOPOSIDE
     Indication: Bone marrow disorder
     Dosage: UNK, CYCLE (ONE CYCLE OF R-CHOP CHEMOTHERAPY)
     Route: 065
  20. ETOPOSIDE [Suspect]
     Active Substance: ETOPOSIDE
     Indication: High-grade B-cell lymphoma
     Dosage: UNK, CYCLE (ONE CYCLE OF R-CHOP CHEMOTHERAPY)
     Route: 065
  21. ETOPOSIDE [Suspect]
     Active Substance: ETOPOSIDE
     Dosage: UNK, CYCLE (FIVE CYCLES OF EPOCH-R CHEMOTHERAPY)
  22. ETOPOSIDE [Suspect]
     Active Substance: ETOPOSIDE
     Dosage: UNK, CYCLE (FIVE CYCLES OF EPOCH-R CHEMOTHERAPY)
  23. ETOPOSIDE [Suspect]
     Active Substance: ETOPOSIDE
     Dosage: UNK, CYCLE (FIVE CYCLES OF EPOCH-R CHEMOTHERAPY)
     Route: 065
  24. ETOPOSIDE [Suspect]
     Active Substance: ETOPOSIDE
     Dosage: UNK, CYCLE (FIVE CYCLES OF EPOCH-R CHEMOTHERAPY)
     Route: 065
  25. CYCLOPHOSPHAMIDE [Suspect]
     Active Substance: CYCLOPHOSPHAMIDE
     Indication: B-cell lymphoma stage IV
     Dosage: UNK, CYCLE (ONE CYCLE OF R-CHOP CHEMOTHERAPY)
  26. CYCLOPHOSPHAMIDE [Suspect]
     Active Substance: CYCLOPHOSPHAMIDE
     Indication: Bone disorder
     Dosage: UNK, CYCLE (ONE CYCLE OF R-CHOP CHEMOTHERAPY)
  27. CYCLOPHOSPHAMIDE [Suspect]
     Active Substance: CYCLOPHOSPHAMIDE
     Indication: Bone marrow disorder
     Dosage: UNK, CYCLE (ONE CYCLE OF R-CHOP CHEMOTHERAPY)
     Route: 065
  28. CYCLOPHOSPHAMIDE [Suspect]
     Active Substance: CYCLOPHOSPHAMIDE
     Indication: High-grade B-cell lymphoma
     Dosage: UNK, CYCLE (ONE CYCLE OF R-CHOP CHEMOTHERAPY)
     Route: 065
  29. CYCLOPHOSPHAMIDE [Suspect]
     Active Substance: CYCLOPHOSPHAMIDE
     Dosage: UNK, CYCLE (FIVE CYCLES OF EPOCH-R CHEMOTHERAPY)
  30. CYCLOPHOSPHAMIDE [Suspect]
     Active Substance: CYCLOPHOSPHAMIDE
     Dosage: UNK, CYCLE (FIVE CYCLES OF EPOCH-R CHEMOTHERAPY)
  31. CYCLOPHOSPHAMIDE [Suspect]
     Active Substance: CYCLOPHOSPHAMIDE
     Dosage: UNK, CYCLE (FIVE CYCLES OF EPOCH-R CHEMOTHERAPY)
     Route: 065
  32. CYCLOPHOSPHAMIDE [Suspect]
     Active Substance: CYCLOPHOSPHAMIDE
     Dosage: UNK, CYCLE (FIVE CYCLES OF EPOCH-R CHEMOTHERAPY)
     Route: 065
  33. RITUXIMAB [Suspect]
     Active Substance: RITUXIMAB
     Indication: B-cell lymphoma stage IV
     Dosage: UNK, CYCLE (ONE CYCLE OF R-CHOP CHEMOTHERAPY)
  34. RITUXIMAB [Suspect]
     Active Substance: RITUXIMAB
     Indication: Bone disorder
     Dosage: UNK, CYCLE (ONE CYCLE OF R-CHOP CHEMOTHERAPY)
  35. RITUXIMAB [Suspect]
     Active Substance: RITUXIMAB
     Indication: Bone marrow disorder
     Dosage: UNK, CYCLE (ONE CYCLE OF R-CHOP CHEMOTHERAPY)
     Route: 065
  36. RITUXIMAB [Suspect]
     Active Substance: RITUXIMAB
     Indication: High-grade B-cell lymphoma
     Dosage: UNK, CYCLE (ONE CYCLE OF R-CHOP CHEMOTHERAPY)
     Route: 065
  37. RITUXIMAB [Suspect]
     Active Substance: RITUXIMAB
     Dosage: UNK, CYCLE (FIVE CYCLES OF EPOCH-R CHEMOTHERAPY)
  38. RITUXIMAB [Suspect]
     Active Substance: RITUXIMAB
     Dosage: UNK, CYCLE (FIVE CYCLES OF EPOCH-R CHEMOTHERAPY)
  39. RITUXIMAB [Suspect]
     Active Substance: RITUXIMAB
     Dosage: UNK, CYCLE (FIVE CYCLES OF EPOCH-R CHEMOTHERAPY)
     Route: 065
  40. RITUXIMAB [Suspect]
     Active Substance: RITUXIMAB
     Dosage: UNK, CYCLE (FIVE CYCLES OF EPOCH-R CHEMOTHERAPY)
     Route: 065
  41. VINCRISTINE [Suspect]
     Active Substance: VINCRISTINE
     Indication: B-cell lymphoma stage IV
     Dosage: UNK, CYCLE (ONE CYCLE OF R-CHOP CHEMOTHERAPY)
  42. VINCRISTINE [Suspect]
     Active Substance: VINCRISTINE
     Indication: Bone disorder
     Dosage: UNK, CYCLE (ONE CYCLE OF R-CHOP CHEMOTHERAPY)
  43. VINCRISTINE [Suspect]
     Active Substance: VINCRISTINE
     Indication: Bone marrow disorder
     Dosage: UNK, CYCLE (ONE CYCLE OF R-CHOP CHEMOTHERAPY)
     Route: 065
  44. VINCRISTINE [Suspect]
     Active Substance: VINCRISTINE
     Indication: High-grade B-cell lymphoma
     Dosage: UNK, CYCLE (ONE CYCLE OF R-CHOP CHEMOTHERAPY)
     Route: 065
  45. VINCRISTINE [Suspect]
     Active Substance: VINCRISTINE
     Dosage: UNK, CYCLE (FIVE CYCLES OF EPOCH-R CHEMOTHERAPY)
  46. VINCRISTINE [Suspect]
     Active Substance: VINCRISTINE
     Dosage: UNK, CYCLE (FIVE CYCLES OF EPOCH-R CHEMOTHERAPY)
  47. VINCRISTINE [Suspect]
     Active Substance: VINCRISTINE
     Dosage: UNK, CYCLE (FIVE CYCLES OF EPOCH-R CHEMOTHERAPY)
     Route: 065
  48. VINCRISTINE [Suspect]
     Active Substance: VINCRISTINE
     Dosage: UNK, CYCLE (FIVE CYCLES OF EPOCH-R CHEMOTHERAPY)
     Route: 065

REACTIONS (1)
  - Drug ineffective [Unknown]
